FAERS Safety Report 8235368-1 (Version None)
Quarter: 2012Q1

REPORT INFORMATION
  Report Type: 
  Country: None (occurrence: None)
  Receive Date: 20120307
  Receipt Date: 20100107
  Transmission Date: 20120608
  Serious: Yes (Other)
  Sender: FDA-Public Use
  Company Number: PHEH2010US00494

PATIENT
  Age: 71 Year
  Sex: Female

DRUGS (1)
  1. AFINITOR [Suspect]
     Indication: RENAL CANCER
     Dosage: 10 MG, QD, ORAL
     Route: 048
     Dates: start: 20090401, end: 20100107

REACTIONS (4)
  - DRUG INEFFECTIVE [None]
  - METASTASES TO LUNG [None]
  - METASTASES TO LYMPH NODES [None]
  - NEOPLASM MALIGNANT [None]
